FAERS Safety Report 8699592 (Version 2)
Quarter: 2012Q4

REPORT INFORMATION
  Report Type: 
  Country: US (occurrence: US)
  Receive Date: 20120802
  Receipt Date: 20121001
  Transmission Date: 20130627
  Serious: Yes (Death, Hospitalization)
  Sender: FDA-Public Use
  Company Number: US-ROCHE-1095296

PATIENT
  Sex: Female

DRUGS (2)
  1. XOLAIR [Suspect]
     Indication: ASTHMA
     Route: 065
     Dates: end: 20061214
  2. XOLAIR [Suspect]
     Indication: RHINITIS ALLERGIC

REACTIONS (4)
  - Anoxia [Unknown]
  - Death [Fatal]
  - Asthma [Unknown]
  - Exposure during pregnancy [Unknown]
